FAERS Safety Report 25254482 (Version 1)
Quarter: 2025Q2

REPORT INFORMATION
  Report Type: Spontaneous
  Country: US (occurrence: US)
  Receive Date: 20250430
  Receipt Date: 20250430
  Transmission Date: 20250717
  Serious: No
  Sender: TEVA
  Company Number: US-TEVA-VS-3321882

PATIENT
  Age: 28 Year
  Sex: Male

DRUGS (1)
  1. UZEDY [Suspect]
     Active Substance: RISPERIDONE
     Indication: Schizoaffective disorder bipolar type
     Dosage: 200/0.56MG/ML
     Route: 065

REACTIONS (4)
  - Anxiety [Unknown]
  - Fatigue [Unknown]
  - Fatigue [Unknown]
  - Stress [Unknown]
